FAERS Safety Report 6383213-1 (Version None)
Quarter: 2009Q3

REPORT INFORMATION
  Report Type: 
  Country: None (occurrence: None)
  Receive Date: 20090929
  Receipt Date: 20090914
  Transmission Date: 20100115
  Serious: Yes (Death, Hospitalization)
  Sender: FDA-Public Use
  Company Number: 2009AL001270

PATIENT
  Age: 68 Year
  Sex: Female

DRUGS (22)
  1. DIGOXIN [Suspect]
     Dosage: 0.25MG, DAILY, PO
     Route: 048
  2. LEXAPRO [Concomitant]
  3. LASIX [Concomitant]
  4. GLUCOTROL [Concomitant]
  5. LOTENSIN [Concomitant]
  6. PROVENTIL-HFA [Concomitant]
  7. ATROVENT [Concomitant]
  8. LOVENOX [Concomitant]
  9. ASPIRIN [Concomitant]
  10. COLACE [Concomitant]
  11. COUMADIN [Concomitant]
  12. FEOSOL [Concomitant]
  13. NITROGLYCERIN [Concomitant]
  14. PREVACID [Concomitant]
  15. MULTI-VITAMINS [Concomitant]
  16. ZINC SULFATE [Concomitant]
  17. ASCORBIC ACID [Concomitant]
  18. KEPPRA [Concomitant]
  19. XANAX [Concomitant]
  20. METOCLOPRAMIDE [Concomitant]
  21. PLAVIX [Concomitant]
  22. COREG [Concomitant]

REACTIONS (35)
  - ANXIETY [None]
  - AORTIC VALVE INCOMPETENCE [None]
  - ARTERIOSCLEROSIS [None]
  - ASPARTATE AMINOTRANSFERASE INCREASED [None]
  - BLOOD ALBUMIN DECREASED [None]
  - BLOOD GLUCOSE DECREASED [None]
  - CARDIAC ARREST [None]
  - CEREBROVASCULAR ACCIDENT [None]
  - CONVULSION [None]
  - DEHYDRATION [None]
  - DIARRHOEA [None]
  - ECONOMIC PROBLEM [None]
  - EMOTIONAL DISTRESS [None]
  - ENCEPHALOMALACIA [None]
  - FAMILY STRESS [None]
  - FEAR [None]
  - HAEMATOCRIT DECREASED [None]
  - HAEMOGLOBIN DECREASED [None]
  - HILAR LYMPHADENOPATHY [None]
  - MITRAL VALVE INCOMPETENCE [None]
  - MULTIPLE INJURIES [None]
  - NAUSEA [None]
  - PAIN [None]
  - PLATELET COUNT INCREASED [None]
  - PLEURAL EFFUSION [None]
  - PNEUMONIA STAPHYLOCOCCAL [None]
  - PULMONARY EMBOLISM [None]
  - PULMONARY INFARCTION [None]
  - RESPIRATORY FAILURE [None]
  - SOCIAL PROBLEM [None]
  - SYNCOPE [None]
  - TRICUSPID VALVE INCOMPETENCE [None]
  - URINARY TRACT INFECTION [None]
  - VOMITING [None]
  - WHITE BLOOD CELL COUNT INCREASED [None]
